FAERS Safety Report 10273024 (Version 1)
Quarter: 2014Q1

REPORT INFORMATION
  Report Type: Spontaneous
  Country: US (occurrence: None)
  Receive Date: 20140306
  Receipt Date: 20140306
  Transmission Date: 20141002
  Serious: Yes (Other)
  Sender: FDA-Public Use
  Company Number: 163-21880-13064509

PATIENT
  Age: 74 Year
  Sex: Male
  Weight: 74.9 kg

DRUGS (6)
  1. REVLIMID (LENALIDOMIDE) (15 MILLIGRAM, CAPSULES) [Suspect]
     Indication: PLASMA CELL MYELOMA
     Route: 048
     Dates: start: 20110606, end: 20111006
  2. LISINOPRIL (LISINOPRIL) [Concomitant]
  3. METOPROLOL (METOPROLOL) [Concomitant]
  4. ASPIRINE (ACETYLSALICYLIC ACID) [Concomitant]
  5. ALLOPURINOL (ALLOPURINOL) [Concomitant]
  6. COLCHICINE (COLCHICINE) [Concomitant]

REACTIONS (2)
  - Platelet count decreased [None]
  - Plasma cell myeloma [None]
